FAERS Safety Report 5245518-7 (Version None)
Quarter: 2007Q1

REPORT INFORMATION
  Report Type: 
  Country: None (occurrence: None)
  Receive Date: 20070223
  Receipt Date: 20070213
  Transmission Date: 20070707
  Serious: Yes (Other)
  Sender: FDA-Public Use
  Company Number: PFIZER INC-2006132893

PATIENT
  Sex: Male
  Weight: 79.4 kg

DRUGS (1)
  1. BEXTRA [Suspect]
     Indication: BACK PAIN
     Route: 048

REACTIONS (3)
  - BLINDNESS [None]
  - CEREBROVASCULAR ACCIDENT [None]
  - MYOCARDIAL INFARCTION [None]
